FAERS Safety Report 13764922 (Version 2)
Quarter: 2017Q3

REPORT INFORMATION
  Report Type: Spontaneous
  Country: US (occurrence: US)
  Receive Date: 20170718
  Receipt Date: 20170818
  Transmission Date: 20171127
  Serious: No
  Sender: FDA-Public Use
  Company Number: US-PFIZER INC-2017306128

PATIENT
  Age: 77 Year
  Sex: Female
  Weight: 81 kg

DRUGS (3)
  1. LEVOTHYROXINE SODIUM. [Suspect]
     Active Substance: LEVOTHYROXINE SODIUM
     Dosage: 0.0625 MG (1/2 TABLET OF 0.125 MG), 1X/DAY
     Dates: start: 201706
  2. LEVOTHYROXINE SODIUM. [Suspect]
     Active Substance: LEVOTHYROXINE SODIUM
     Indication: THYROID HORMONE REPLACEMENT THERAPY
     Dosage: 0.75 MG (A WHOLE TABLET), 1X/DAY
  3. LEVOTHYROXINE SODIUM. [Suspect]
     Active Substance: LEVOTHYROXINE SODIUM
     Dosage: 0.075 UG, 1X/DAY
     Route: 048

REACTIONS (1)
  - Ventricular extrasystoles [Unknown]
